FAERS Safety Report 19870681 (Version 1)
Quarter: 2021Q3

REPORT INFORMATION
  Report Type: Spontaneous
  Country: FR (occurrence: FR)
  Receive Date: 20210923
  Receipt Date: 20210923
  Transmission Date: 20211014
  Serious: Yes (Hospitalization)
  Sender: FDA-Public Use
  Company Number: FR-ROCHE-2913351

PATIENT
  Age: 74 Year
  Sex: Female

DRUGS (2)
  1. VALIUM [Suspect]
     Active Substance: DIAZEPAM
     Indication: PRODUCT ADMINISTRATION ERROR
     Route: 042
     Dates: start: 20210904, end: 20210904
  2. MORPHINE HYDROCHLORIDE [Suspect]
     Active Substance: MORPHINE HYDROCHLORIDE
     Indication: PRODUCT ADMINISTRATION ERROR
     Route: 042
     Dates: start: 20210904, end: 20210904

REACTIONS (5)
  - Incorrect dose administered by device [Unknown]
  - Product preparation error [Unknown]
  - Coma [Recovered/Resolved]
  - Bradypnoea [Recovered/Resolved]
  - Accidental overdose [Unknown]

NARRATIVE: CASE EVENT DATE: 20210904
